FAERS Safety Report 4360822-2 (Version None)
Quarter: 2004Q2

REPORT INFORMATION
  Report Type: 
  Country: None (occurrence: None)
  Receive Date: 20040517
  Receipt Date: 20040421
  Transmission Date: 20050107
  Serious: Yes (Other)
  Sender: FDA-Public Use
  Company Number: 23958

PATIENT
  Sex: Female

DRUGS (1)
  1. ALDARA [Suspect]
     Indication: CHEILITIS
     Dosage: 4-5 DAYS ONLY (DOSING UNSPECIFIED); TOPICAL
     Route: 061

REACTIONS (4)
  - APPLICATION SITE OEDEMA [None]
  - APPLICATION SITE REACTION [None]
  - HERPES SIMPLEX [None]
  - SWELLING FACE [None]
